FAERS Safety Report 8207461-0 (Version None)
Quarter: 2012Q1

REPORT INFORMATION
  Report Type: 
  Country: None (occurrence: None)
  Receive Date: 20120314
  Receipt Date: 20120306
  Transmission Date: 20120608
  Serious: Yes (Hospitalization)
  Sender: FDA-Public Use
  Company Number: JP-ASTELLAS-2012JP002042

PATIENT
  Age: 64 Year
  Sex: Male
  Weight: 46.8 kg

DRUGS (17)
  1. FERROUS SULFATE TAB [Concomitant]
     Indication: COLITIS ULCERATIVE
     Dosage: UNK
     Route: 065
     Dates: start: 20110416, end: 20110611
  2. TACROLIMUS [Suspect]
     Indication: COLITIS ULCERATIVE
     Dosage: 3.5 MG, BID
     Route: 048
     Dates: start: 20110426, end: 20110608
  3. TACROLIMUS [Suspect]
     Dosage: 1.5 MG, BID
     Route: 048
     Dates: start: 20110408, end: 20110410
  4. TACROLIMUS [Suspect]
     Dosage: 4.5 MG, BID
     Route: 048
     Dates: start: 20110422, end: 20110425
  5. TACROLIMUS [Suspect]
     Dosage: 4.5 MG, BID
     Route: 048
     Dates: start: 20110411, end: 20110412
  6. PREDNISOLONE [Concomitant]
     Indication: COLITIS ULCERATIVE
     Dosage: 50 MG, UNKNOWN/D
     Route: 065
     Dates: start: 20110311, end: 20110316
  7. PREDNISOLONE [Concomitant]
     Dosage: 1000 MG, UNKNOWN/D
     Route: 065
     Dates: start: 20110317, end: 20110319
  8. TACROLIMUS [Suspect]
     Dosage: 1 MG, BID
     Route: 048
     Dates: start: 20110609, end: 20110612
  9. PENTASA [Concomitant]
     Indication: COLITIS ULCERATIVE
     Dosage: 4000 MG, UNKNOWN/D
     Route: 048
     Dates: end: 20110623
  10. TACROLIMUS [Suspect]
     Dosage: 6 MG, BID
     Route: 048
     Dates: start: 20110413, end: 20110421
  11. ALBUMINAR [Concomitant]
     Indication: COLITIS ULCERATIVE
     Dosage: UNK
     Route: 065
     Dates: start: 20110409, end: 20110411
  12. VANCOMYCIN [Concomitant]
     Indication: COLITIS ULCERATIVE
     Dosage: UNK
     Route: 065
     Dates: start: 20110411, end: 20110411
  13. MEROPENEM [Concomitant]
     Indication: COLITIS ULCERATIVE
     Dosage: UNK
     Route: 065
     Dates: start: 20110411, end: 20110413
  14. CEFAZOLIN [Concomitant]
     Indication: COLITIS ULCERATIVE
     Dosage: UNK
     Route: 065
     Dates: start: 20110411, end: 20110425
  15. VENOGLOBULIN [Concomitant]
     Indication: COLITIS ULCERATIVE
     Dosage: UNK
     Route: 065
     Dates: start: 20110411, end: 20110413
  16. MAGNESIUM SULFATE [Concomitant]
     Dosage: UNK
     Route: 065
     Dates: start: 20110422, end: 20110607
  17. GANCICLOVIR [Concomitant]
     Indication: COLITIS ULCERATIVE
     Dosage: UNK
     Route: 065
     Dates: start: 20110408, end: 20110421

REACTIONS (1)
  - COLONIC STENOSIS [None]
